FAERS Safety Report 24781678 (Version 1)
Quarter: 2024Q4

REPORT INFORMATION
  Report Type: Spontaneous
  Country: US (occurrence: US)
  Receive Date: 20241227
  Receipt Date: 20241227
  Transmission Date: 20250114
  Serious: Yes (Death, Life-Threatening, Other)
  Sender: APOTEX
  Company Number: US-APOTEX-2024AP020080

PATIENT
  Age: 65 Year
  Sex: Female

DRUGS (1)
  1. TEMOZOLOMIDE [Suspect]
     Active Substance: TEMOZOLOMIDE
     Indication: Glioblastoma multiforme
     Dosage: UNK
     Route: 065

REACTIONS (6)
  - Thrombocytopenia [Fatal]
  - Myelosuppression [Fatal]
  - Neutropenia [Fatal]
  - Febrile neutropenia [Fatal]
  - Cytomegalovirus infection [Fatal]
  - Aplastic anaemia [Fatal]
